FAERS Safety Report 8432062-9 (Version None)
Quarter: 2012Q2

REPORT INFORMATION
  Report Type: 
  Country: None (occurrence: None)
  Receive Date: 20120606
  Receipt Date: 20120528
  Transmission Date: 20120825
  Serious: Yes (Death, Hospitalization, Other)
  Sender: FDA-Public Use
  Company Number: AUR-APL-2012-02457

PATIENT
  Age: 24 Year
  Sex: Female

DRUGS (4)
  1. BUPROPION HCL [Suspect]
     Indication: PRODUCT USED FOR UNKNOWN INDICATION
     Dosage: (13.5 GM), ORAL
     Route: 048
  2. TRAZODONE HCL [Suspect]
     Indication: PRODUCT USED FOR UNKNOWN INDICATION
     Dosage: (4.5 GM), ORAL
     Route: 048
  3. CITALOPRAM HYDROBROMIDE [Suspect]
     Indication: PRODUCT USED FOR UNKNOWN INDICATION
     Dosage: (1.8 GM), ORAL
     Route: 048
  4. CLONAZEPAM [Suspect]
     Indication: PRODUCT USED FOR UNKNOWN INDICATION
     Dosage: (90 MG), ORAL
     Route: 048

REACTIONS (12)
  - DEPRESSED LEVEL OF CONSCIOUSNESS [None]
  - BODY TEMPERATURE DECREASED [None]
  - VENTRICULAR TACHYCARDIA [None]
  - CARDIOTOXICITY [None]
  - RESPIRATORY RATE DECREASED [None]
  - MIOSIS [None]
  - AREFLEXIA [None]
  - MULTIPLE DRUG OVERDOSE [None]
  - UNRESPONSIVE TO STIMULI [None]
  - FLUSHING [None]
  - ELECTROCARDIOGRAM QT PROLONGED [None]
  - GRAND MAL CONVULSION [None]
